FAERS Safety Report 20317727 (Version 1)
Quarter: 2022Q1

REPORT INFORMATION
  Report Type: Spontaneous
  Country: US (occurrence: None)
  Receive Date: 20220107
  Receipt Date: 20220107
  Transmission Date: 20220423
  Serious: Yes (unspecified)
  Sender: FDA-Public Use
  Company Number: None

PATIENT
  Age: 43 Year
  Sex: Female
  Weight: 71.1 kg

DRUGS (1)
  1. OMEPRAZOLE [Suspect]
     Active Substance: OMEPRAZOLE
     Indication: Gastrooesophageal reflux disease
     Dosage: OTHER QUANTITY : 30 CAPSULE(S);?
     Route: 048
     Dates: start: 20220104, end: 20220107

REACTIONS (4)
  - Oesophageal disorder [None]
  - Therapeutic product effect decreased [None]
  - Vomiting [None]
  - Product substitution issue [None]

NARRATIVE: CASE EVENT DATE: 20220105
